FAERS Safety Report 10602975 (Version 2)
Quarter: 2014Q4

REPORT INFORMATION
  Report Type: Spontaneous
  Country: CA (occurrence: CA)
  Receive Date: 20141124
  Receipt Date: 20141216
  Transmission Date: 20150529
  Serious: Yes (Other)
  Sender: FDA-Public Use
  Company Number: CA-TEVA-523497USA

PATIENT
  Sex: Male

DRUGS (1)
  1. PROPRANOLOL [Suspect]
     Active Substance: PROPRANOLOL\PROPRANOLOL HYDROCHLORIDE
     Indication: HAEMANGIOMA
     Dosage: DOSE INCREASED EVERY 2DAYS, MAINTAINED AT 2 MG/KG/DAY, DIVIDED 3 TIMES/DAY
     Route: 065

REACTIONS (1)
  - Bradycardia [Recovering/Resolving]
